FAERS Safety Report 18336604 (Version 4)
Quarter: 2021Q2

REPORT INFORMATION
  Report Type: Spontaneous
  Country: CH (occurrence: CH)
  Receive Date: 20201001
  Receipt Date: 20210416
  Transmission Date: 20210717
  Serious: Yes (Life-Threatening, Hospitalization, Other)
  Sender: FDA-Public Use
  Company Number: CH-009507513-2009CHE011681

PATIENT
  Age: 46 Year
  Sex: Female
  Weight: 70 kg

DRUGS (10)
  1. CUBICIN [Suspect]
     Active Substance: DAPTOMYCIN
     Dosage: UNK
     Route: 040
     Dates: start: 20210204, end: 20210206
  2. NOVALGIN (DIPYRONE) [Concomitant]
     Active Substance: DIPYRONE
  3. PROGRAF [Concomitant]
     Active Substance: TACROLIMUS
  4. RIFAMPIN. [Concomitant]
     Active Substance: RIFAMPIN
  5. DOSPIR [Concomitant]
     Active Substance: ALBUTEROL SULFATE\IPRATROPIUM BROMIDE
  6. ZOLOFT [Concomitant]
     Active Substance: SERTRALINE HYDROCHLORIDE
  7. ESOMEP [Concomitant]
     Active Substance: ESOMEPRAZOLE
  8. CUBICIN [Suspect]
     Active Substance: DAPTOMYCIN
     Dosage: 500 MG/48H
     Route: 040
     Dates: start: 20200827, end: 20200907
  9. MEROPENEM. [Concomitant]
     Active Substance: MEROPENEM
     Dosage: 1 GRAM, BID
     Route: 042
     Dates: start: 20200827, end: 20200907
  10. PREDNISONE. [Concomitant]
     Active Substance: PREDNISONE

REACTIONS (4)
  - Eosinophilia [Recovered/Resolved]
  - Vasculitis [Recovering/Resolving]
  - Petechiae [Recovering/Resolving]
  - Rash [Recovering/Resolving]

NARRATIVE: CASE EVENT DATE: 20200903
